FAERS Safety Report 6072052-7 (Version None)
Quarter: 2009Q1

REPORT INFORMATION
  Report Type: 
  Country: None (occurrence: None)
  Receive Date: 20090205
  Receipt Date: 20090205
  Transmission Date: 20090719
  Serious: No
  Sender: FDA-Public Use
  Company Number: None

PATIENT
  Age: 29 Year
  Sex: Female
  Weight: 120.6568 kg

DRUGS (3)
  1. CYMBALTA [Suspect]
     Indication: GENERALISED ANXIETY DISORDER
     Dosage: 60 MG QD PO 90 MG QD PO
     Route: 048
     Dates: start: 20090106, end: 20090129
  2. CYMBALTA [Suspect]
     Indication: MAJOR DEPRESSION
     Dosage: 60 MG QD PO 90 MG QD PO
     Route: 048
     Dates: start: 20090106, end: 20090129
  3. CYMBALTA [Suspect]

REACTIONS (2)
  - FEMALE ORGASMIC DISORDER [None]
  - YAWNING [None]
